FAERS Safety Report 7369916-0 (Version None)
Quarter: 2011Q1

REPORT INFORMATION
  Report Type: 
  Country: None (occurrence: None)
  Receive Date: 20110323
  Receipt Date: 20110318
  Transmission Date: 20110831
  Serious: Yes (Other)
  Sender: FDA-Public Use
  Company Number: US-PFIZER INC-2011020100

PATIENT
  Sex: Male

DRUGS (6)
  1. NEURONTIN [Suspect]
     Indication: NEURALGIA
     Dosage: 100MG ONCE A DAY
  2. NEURONTIN [Suspect]
     Indication: HYPOAESTHESIA
     Dosage: 800 MG ONCE A DAY
     Route: 048
     Dates: start: 20000101, end: 20090101
  3. NEURONTIN [Suspect]
  4. NEURONTIN [Suspect]
     Indication: PARAESTHESIA
  5. NEURONTIN [Suspect]
  6. NEURONTIN [Suspect]
     Dosage: UNK
     Route: 048
     Dates: start: 20090101

REACTIONS (6)
  - IMPAIRED WORK ABILITY [None]
  - DRUG INEFFECTIVE [None]
  - DYSPHAGIA [None]
  - OVERWEIGHT [None]
  - FATIGUE [None]
  - PRODUCT TASTE ABNORMAL [None]
